FAERS Safety Report 8314887-3 (Version None)
Quarter: 2012Q1

REPORT INFORMATION
  Report Type: 
  Country: None (occurrence: None)
  Receive Date: 20120315
  Receipt Date: 20110516
  Transmission Date: 20120608
  Serious: Yes (Other)
  Sender: FDA-Public Use
  Company Number: PHHY2011US37545

PATIENT
  Age: 48 Year
  Sex: Female
  Weight: 50.8 kg

DRUGS (5)
  1. FLECTOR [Concomitant]
  2. LAMICTAL [Concomitant]
  3. LUNESTA [Concomitant]
  4. AMRIX [Concomitant]
  5. GILENYA [Suspect]
     Indication: MULTIPLE SCLEROSIS
     Dosage: 0.5 MG, QD, ORAL
     Route: 048
     Dates: start: 20110401

REACTIONS (4)
  - DIARRHOEA [None]
  - HEADACHE [None]
  - HYPERTENSION [None]
  - MUSCLE SPASMS [None]
